FAERS Safety Report 9507824 (Version 1)
Quarter: 2013Q3

REPORT INFORMATION
  Report Type: Spontaneous
  Country: BR (occurrence: BR)
  Receive Date: 20130909
  Receipt Date: 20130909
  Transmission Date: 20140515
  Serious: Yes (Other)
  Sender: FDA-Public Use
  Company Number: BR-PFIZER INC-2013253230

PATIENT
  Age: 67 Year
  Sex: Male
  Weight: 70 kg

DRUGS (1)
  1. XALATAN [Suspect]
     Indication: OPTIC NERVE DISORDER
     Dosage: 3 UG, 1 DROP IN EACH EYE 1X/DAY
     Route: 047
     Dates: start: 20120405

REACTIONS (4)
  - Glaucoma [Unknown]
  - Intraocular pressure increased [Unknown]
  - Optic nerve disorder [Unknown]
  - Off label use [Recovered/Resolved]
